FAERS Safety Report 7880714-1 (Version None)
Quarter: 2011Q4

REPORT INFORMATION
  Report Type: 
  Country: None (occurrence: None)
  Receive Date: 20111101
  Receipt Date: 20111021
  Transmission Date: 20120403
  Serious: Yes (Hospitalization)
  Sender: FDA-Public Use
  Company Number: US-JNJFOC-20111010586

PATIENT
  Sex: Female
  Weight: 116.12 kg

DRUGS (6)
  1. VITAMIN D [Concomitant]
  2. JANUVIA [Concomitant]
     Indication: DIABETES MELLITUS
     Route: 048
  3. HYDROCHLOROTHIAZIDE [Concomitant]
     Indication: HYPERTENSION
     Route: 048
  4. REMICADE [Suspect]
     Indication: RHEUMATOID ARTHRITIS
     Route: 042
     Dates: start: 20080101
  5. NORVASC [Concomitant]
     Indication: HYPERTENSION
     Route: 048
  6. PERCOCET [Suspect]
     Indication: PAIN
     Route: 048
     Dates: start: 20111001

REACTIONS (6)
  - RHEUMATOID ARTHRITIS [None]
  - MUSCLE SPASMS [None]
  - INFUSION RELATED REACTION [None]
  - SOMNOLENCE [None]
  - RENAL DISORDER [None]
  - HYPERSENSITIVITY [None]
